FAERS Safety Report 8338901-4 (Version None)
Quarter: 2012Q2

REPORT INFORMATION
  Report Type: 
  Country: None (occurrence: None)
  Receive Date: 20120506
  Receipt Date: 20120430
  Transmission Date: 20120825
  Serious: Yes (Death, Hospitalization)
  Sender: FDA-Public Use
  Company Number: IE-MEDIMMUNE-MEDI-0013854

PATIENT
  Sex: Female

DRUGS (5)
  1. SYNAGIS [Suspect]
     Route: 030
     Dates: start: 20111001, end: 20111001
  2. AMOXICILLIN [Concomitant]
     Indication: UPPER RESPIRATORY TRACT INFECTION
     Route: 048
     Dates: start: 20111025, end: 20111105
  3. SYNAGIS [Suspect]
  4. OXYGEN [Concomitant]
     Route: 048
  5. AUGMENTIN [Concomitant]
     Indication: UPPER RESPIRATORY TRACT INFECTION
     Route: 048
     Dates: start: 20111105

REACTIONS (6)
  - APNOEA [None]
  - CONGENITAL CARDIOVASCULAR ANOMALY [None]
  - MALAISE [None]
  - CARDIO-RESPIRATORY ARREST [None]
  - UPPER RESPIRATORY TRACT INFECTION [None]
  - INFECTION [None]
